FAERS Safety Report 7938995-1 (Version None)
Quarter: 2011Q4

REPORT INFORMATION
  Report Type: 
  Country: None (occurrence: None)
  Receive Date: 20111124
  Receipt Date: 20111117
  Transmission Date: 20120403
  Serious: Yes (Other)
  Sender: FDA-Public Use
  Company Number: CA-AMGEN-CANSP2011061599

PATIENT
  Age: 38 Year
  Sex: Female

DRUGS (16)
  1. OXYCODET [Concomitant]
     Dosage: UNK
  2. METFORMIN [Concomitant]
     Dosage: 500 MG, QID
  3. RABEPRAZOLE SODIUM [Concomitant]
     Dosage: 20 MG, QD
  4. NORVASC [Concomitant]
     Dosage: 10 MG, QD
  5. ENBREL [Suspect]
     Indication: RHEUMATOID ARTHRITIS
     Dosage: 50 MG/ML, 50 MG WEEKLY
     Route: 058
     Dates: start: 20110301
  6. HYDROCHLOROTHIAZIDE [Concomitant]
     Dosage: 25 MG, QD
  7. CRESTOR [Concomitant]
     Dosage: 10 MG, QD
  8. LIPITOR [Concomitant]
     Dosage: UNK
  9. JANUVIA [Concomitant]
     Dosage: 100 MG, QD
  10. GRAVOL TAB [Concomitant]
     Indication: SLEEP DISORDER
     Dosage: 100 MG, QD
  11. METHOTREXATE SODIUM [Concomitant]
     Dosage: 25 MG, QWK
  12. ASPIRIN [Concomitant]
     Dosage: 81 MG, QD
  13. RAMIPRIL [Concomitant]
     Dosage: 10 MG, QD
  14. APO-GLYBURIDE [Concomitant]
     Dosage: 5 MG, BID
  15. APO-IBUPROFEN [Concomitant]
     Dosage: 600 MG, UNK
  16. FOLIC ACID [Concomitant]
     Dosage: 5 MG, QD

REACTIONS (5)
  - OEDEMA PERIPHERAL [None]
  - TYPE 2 DIABETES MELLITUS [None]
  - WEIGHT DECREASED [None]
  - DIABETES MELLITUS INADEQUATE CONTROL [None]
  - DRUG DOSE OMISSION [None]
